FAERS Safety Report 18265049 (Version 1)
Quarter: 2020Q3

REPORT INFORMATION
  Report Type: Spontaneous
  Country: CN (occurrence: CN)
  Receive Date: 20200914
  Receipt Date: 20200914
  Transmission Date: 20201103
  Serious: Yes (Hospitalization)
  Sender: FDA-Public Use
  Company Number: CN-GE HEALTHCARE LIFE SCIENCES-2020CSU004054

PATIENT

DRUGS (5)
  1. VISIPAQUE [Suspect]
     Active Substance: IODIXANOL
     Indication: CAROTID ARTERY STENOSIS
  2. DIAMICRON [Concomitant]
     Active Substance: GLICLAZIDE
  3. VISIPAQUE [Suspect]
     Active Substance: IODIXANOL
     Indication: ANGIOGRAM CEREBRAL
     Dosage: 150 ML, SINGLE
     Route: 013
     Dates: start: 20200818, end: 20200818
  4. GLUCOBAY [Concomitant]
     Active Substance: ACARBOSE
     Indication: DIABETES MELLITUS
  5. VISIPAQUE [Suspect]
     Active Substance: IODIXANOL
     Indication: CAROTID ARTERY STENT INSERTION

REACTIONS (5)
  - Lethargy [Not Recovered/Not Resolved]
  - Hemiplegia [Recovering/Resolving]
  - Depressed level of consciousness [Not Recovered/Not Resolved]
  - Cerebral infarction [Not Recovered/Not Resolved]
  - Contrast encephalopathy [Not Recovered/Not Resolved]

NARRATIVE: CASE EVENT DATE: 20200818
